FAERS Safety Report 25541114 (Version 1)
Quarter: 2025Q3

REPORT INFORMATION
  Report Type: Report from Study
  Country: CA (occurrence: CA)
  Receive Date: 20250710
  Receipt Date: 20250710
  Transmission Date: 20251020
  Serious: Yes (Hospitalization, Other)
  Sender: ABBVIE
  Company Number: CA-ABBVIE-6361732

PATIENT
  Age: 55 Year
  Sex: Male

DRUGS (1)
  1. SKYRIZI [Suspect]
     Active Substance: RISANKIZUMAB-RZAA
     Indication: Psoriasis
     Dosage: FORM STRENGTH 150MG/ML
     Route: 058
     Dates: start: 20200715

REACTIONS (14)
  - Large intestine perforation [Unknown]
  - Abdominal pain [Unknown]
  - Colonic abscess [Unknown]
  - Abdominal pain lower [Unknown]
  - Flank pain [Unknown]
  - Constipation [Unknown]
  - Dysuria [Unknown]
  - Diverticulitis [Not Recovered/Not Resolved]
  - Diverticulitis intestinal perforated [Unknown]
  - Pain [Unknown]
  - Abscess [Not Recovered/Not Resolved]
  - Haematochezia [Unknown]
  - Diarrhoea [Unknown]
  - Colon neoplasm [Unknown]

NARRATIVE: CASE EVENT DATE: 20250506
